FAERS Safety Report 6381712-X (Version None)
Quarter: 2009Q3

REPORT INFORMATION
  Report Type: 
  Country: None (occurrence: None)
  Receive Date: 20090930
  Receipt Date: 20090918
  Transmission Date: 20100115
  Serious: Yes (Other)
  Sender: FDA-Public Use
  Company Number: PHHY2009IT40340

PATIENT
  Sex: Male

DRUGS (2)
  1. ZOMETA [Suspect]
     Dosage: 4 MG, QMO
     Route: 042
     Dates: start: 20060201, end: 20061231
  2. LEUPROLIDE ACETATE [Concomitant]
     Dosage: 1 DOSAGE UNIT

REACTIONS (2)
  - OSTEOMYELITIS [None]
  - SURGERY [None]
